FAERS Safety Report 9702878 (Version 2)
Quarter: 2013Q4

REPORT INFORMATION
  Report Type: Spontaneous
  Country: US (occurrence: None)
  Receive Date: 20131120
  Receipt Date: 20131203
  Transmission Date: 20140711
  Serious: Yes (Other)
  Sender: FDA-Public Use
  Company Number: USW201311-000141

PATIENT
  Age: 80 Year
  Sex: Male

DRUGS (13)
  1. APOKYN [Suspect]
     Indication: PARKINSON^S DISEASE
     Dosage: (SITE: RIGHT LOWER QUADRANT ABDOMEN), 1-2 TIMES DAILY, AS REQUIRED
     Route: 058
     Dates: start: 20131029, end: 20131108
  2. PRILOSEC [Concomitant]
  3. TIGAN [Concomitant]
  4. CARBIDOPA/LEVODOPA [Concomitant]
  5. ARICEPT [Concomitant]
  6. CYMBALTA [Concomitant]
  7. ASPIRIN [Concomitant]
  8. NORVASC [Concomitant]
  9. PRAVASTATIN [Concomitant]
  10. ENALAPRIL [Concomitant]
  11. COLACE [Concomitant]
  12. VITAMIN D [Concomitant]
  13. FIBERCON [Concomitant]

REACTIONS (3)
  - Loss of consciousness [None]
  - Pallor [None]
  - Tremor [None]
